APPROVED DRUG PRODUCT: LIVMARLI
Active Ingredient: MARALIXIBAT CHLORIDE
Strength: EQ 19MG BASE/ML
Dosage Form/Route: SOLUTION;ORAL
Application: N214662 | Product #002
Applicant: MIRUM PHARMACEUTICALS INC
Approved: Jul 24, 2024 | RLD: Yes | RS: Yes | Type: RX

PATENTS:
Patent 12350267 | Expires: Oct 26, 2032
Patent 11229661 | Expires: Oct 26, 2032
Patent 10512657 | Expires: Oct 26, 2032

EXCLUSIVITY:
Code: NCE | Date: Sep 29, 2026
Code: ODE* | Date: Sep 29, 2028
Code: ODE* | Date: Mar 13, 2030
Code: ODE* | Date: Mar 13, 2031
Code: ODE-490 | Date: Jul 24, 2031